FAERS Safety Report 16002108 (Version 1)
Quarter: 2019Q1

REPORT INFORMATION
  Report Type: Spontaneous
  Country: JP (occurrence: JP)
  Receive Date: 20190225
  Receipt Date: 20190225
  Transmission Date: 20190418
  Serious: Yes (Hospitalization)
  Sender: FDA-Public Use
  Company Number: JP-ELI_LILLY_AND_COMPANY-JP201902010034

PATIENT
  Age: 46 Year
  Sex: Male
  Weight: 55 kg

DRUGS (6)
  1. MINOCYCLINE HYDROCHLORIDE. [Concomitant]
     Active Substance: MINOCYCLINE HYDROCHLORIDE
     Indication: PROPHYLAXIS
     Dosage: 100 MG, UNKNOWN
     Route: 048
     Dates: start: 20180822
  2. ERBITUX [Suspect]
     Active Substance: CETUXIMAB
     Dosage: 410 MG, WEEKLY (1/W)
     Route: 041
     Dates: end: 20190206
  3. OPSO [Concomitant]
     Active Substance: MORPHINE HYDROCHLORIDE
     Indication: PAIN
     Dosage: 5 MG, UNKNOWN
     Route: 048
     Dates: start: 20180124
  4. TAS 102 [Suspect]
     Active Substance: TIPIRACIL HYDROCHLORIDE\TRIFLURIDINE
     Indication: COLON CANCER
     Dosage: 110 MG, UNKNOWN
     Route: 048
     Dates: start: 20181121, end: 20190206
  5. ERBITUX [Suspect]
     Active Substance: CETUXIMAB
     Indication: COLON CANCER
     Dosage: 650 MG, UNKNOWN
     Route: 041
     Dates: start: 20181121
  6. BROTIZOLAM [Concomitant]
     Active Substance: BROTIZOLAM
     Indication: INSOMNIA
     Dosage: .25 MG, UNK
     Route: 048
     Dates: start: 20170830

REACTIONS (3)
  - Renal disorder [Recovering/Resolving]
  - Ureterolithiasis [Recovering/Resolving]
  - Urinary tract disorder [Recovering/Resolving]

NARRATIVE: CASE EVENT DATE: 20190208
